FAERS Safety Report 13330178 (Version 2)
Quarter: 2017Q2

REPORT INFORMATION
  Report Type: Report from Study
  Country: CA (occurrence: CA)
  Receive Date: 20170313
  Receipt Date: 20170403
  Transmission Date: 20170830
  Serious: Yes (Life-Threatening, Other)
  Sender: FDA-Public Use
  Company Number: CA-BAYER-2016-175136

PATIENT
  Age: 64 Year
  Sex: Female

DRUGS (4)
  1. NEXAVAR [Suspect]
     Active Substance: SORAFENIB
     Indication: HEPATOCELLULAR CARCINOMA
     Dosage: 400 MG, QD
     Route: 048
     Dates: start: 20160722
  2. NEXAVAR [Suspect]
     Active Substance: SORAFENIB
     Indication: HEPATOCELLULAR CARCINOMA
     Dosage: 200 MG, QD
     Route: 048
  3. ZOPICLONE [Concomitant]
     Active Substance: ZOPICLONE
  4. VALSARTAN. [Concomitant]
     Active Substance: VALSARTAN

REACTIONS (17)
  - Adverse drug reaction [Not Recovered/Not Resolved]
  - Adverse drug reaction [None]
  - Tongue erythema [Not Recovered/Not Resolved]
  - Diarrhoea [None]
  - Blister [None]
  - Nausea [None]
  - Toxicity to various agents [None]
  - Tongue blistering [None]
  - Hypoaesthesia [Not Recovered/Not Resolved]
  - Intentional product use issue [None]
  - Diarrhoea [None]
  - Alopecia [None]
  - Gastrointestinal disorder [None]
  - Adverse event [None]
  - Glossodynia [Not Recovered/Not Resolved]
  - Drug dose omission [None]
  - Vomiting [None]

NARRATIVE: CASE EVENT DATE: 201607
